FAERS Safety Report 8901381 (Version 1)
Quarter: 2012Q4

REPORT INFORMATION
  Report Type: Report from Study
  Country: CA (occurrence: CA)
  Receive Date: 20121109
  Receipt Date: 20121109
  Transmission Date: 20130627
  Serious: Yes (Hospitalization)
  Sender: FDA-Public Use
  Company Number: CA-JNJFOC-20121101130

PATIENT
  Sex: Female
  Weight: 72.8 kg

DRUGS (2)
  1. REMICADE [Suspect]
     Indication: CROHN^S DISEASE
     Route: 042
     Dates: start: 2009
  2. BIRTH CONTROL PILLS [Concomitant]
     Route: 065

REACTIONS (2)
  - Arthritis [Unknown]
  - Pyrexia [Unknown]
